FAERS Safety Report 10025448 (Version 3)
Quarter: 2014Q2

REPORT INFORMATION
  Report Type: Report from Study
  Country: CA (occurrence: CA)
  Receive Date: 20140320
  Receipt Date: 20140402
  Transmission Date: 20141212
  Serious: Yes (Other)
  Sender: FDA-Public Use
  Company Number: CA-JNJFOC-20140304296

PATIENT
  Age: 43 Year
  Sex: Female

DRUGS (2)
  1. REMICADE [Suspect]
     Indication: RHEUMATOID ARTHRITIS
     Route: 042
     Dates: start: 20140131
  2. REMICADE [Suspect]
     Indication: RHEUMATOID ARTHRITIS
     Route: 042
     Dates: start: 20140312

REACTIONS (10)
  - Chest discomfort [Recovering/Resolving]
  - Limb discomfort [Recovering/Resolving]
  - Infusion related reaction [Recovering/Resolving]
  - Pyrexia [Recovered/Resolved]
  - Feeling abnormal [Recovered/Resolved]
  - Dental caries [Recovered/Resolved]
  - Pain in jaw [Recovered/Resolved]
  - Arthralgia [Recovered/Resolved]
  - Tachycardia [Recovering/Resolving]
  - Tachypnoea [Recovering/Resolving]
